FAERS Safety Report 16989012 (Version 2)
Quarter: 2019Q4

REPORT INFORMATION
  Report Type: Report from Study
  Country: TH (occurrence: TH)
  Receive Date: 20191104
  Receipt Date: 20191111
  Transmission Date: 20200122
  Serious: Yes (Other)
  Sender: FDA-Public Use
  Company Number: TH-GLAXOSMITHKLINE-TH2019GSK195693

PATIENT
  Age: 2 Year
  Sex: Female
  Weight: 11.3 kg

DRUGS (26)
  1. ZIDOVUDINE. [Concomitant]
     Active Substance: ZIDOVUDINE
     Dosage: UNK, BID
     Route: 048
     Dates: start: 20191025
  2. AZITHROMYCINE [Concomitant]
     Active Substance: AZITHROMYCIN
     Dosage: UNK
     Dates: start: 20190913, end: 20190914
  3. POTASSIUM CHLORIDE ELIXIR [Concomitant]
     Dosage: UNK
     Dates: start: 20191003, end: 20191003
  4. BERODUAL NEBULE [Concomitant]
  5. DOLUTEGRAVIR [Suspect]
     Active Substance: DOLUTEGRAVIR
     Indication: HIV INFECTION
     Dosage: 20 MG, QD
     Route: 048
     Dates: start: 20191016, end: 20191025
  6. AZIDOTHYMIDINE [Concomitant]
     Active Substance: ZIDOVUDINE
     Indication: HIV INFECTION
     Dosage: UNK UNK, BID
     Route: 048
     Dates: start: 20191016, end: 20191025
  7. LAMIVUDINE. [Concomitant]
     Active Substance: LAMIVUDINE
     Indication: HIV INFECTION
     Dosage: UNK UNK, BID
     Route: 048
     Dates: start: 20191016, end: 20191025
  8. SALBUTAMOL NEBULIZATION DROPS [Concomitant]
     Dosage: UNK
     Dates: start: 20190903, end: 20191018
  9. PARACETAMOL [Concomitant]
     Active Substance: ACETAMINOPHEN
     Dosage: UNK
     Dates: start: 20191012, end: 20191013
  10. FLUCONAZOLE. [Concomitant]
     Active Substance: FLUCONAZOLE
     Dosage: UNK
     Dates: start: 20191003, end: 20191011
  11. 5% DEXTROSE + SODIUM CHLORIDE SOLUTION [Concomitant]
  12. BACTRIM [Concomitant]
     Active Substance: SULFAMETHOXAZOLE\TRIMETHOPRIM
     Dosage: UNK, QD
     Dates: start: 20191002, end: 20191025
  13. OSELTAMIVIR [Concomitant]
     Active Substance: OSELTAMIVIR
     Dosage: UNK
     Dates: start: 20190919, end: 20190924
  14. CEFTRIAXONE. [Concomitant]
     Active Substance: CEFTRIAXONE
     Dosage: UNK
     Dates: start: 20190917, end: 20190924
  15. MEROPENEM. [Concomitant]
     Active Substance: MEROPENEM
     Dosage: UNK
     Dates: start: 20191012, end: 20191015
  16. CEFDINIR. [Concomitant]
     Active Substance: CEFDINIR
     Dosage: UNK
     Dates: start: 20191019, end: 20191020
  17. AZITHROMYCIN ANHYDROUS. [Concomitant]
     Active Substance: AZITHROMYCIN ANHYDROUS
     Dosage: UNK, QD
     Route: 048
     Dates: start: 20191004, end: 20191025
  18. CIPROFLOXACIN. [Concomitant]
     Active Substance: CIPROFLOXACIN
     Dosage: UNK
     Dates: start: 20190917, end: 20190924
  19. FUROSEMIDE. [Concomitant]
     Active Substance: FUROSEMIDE
     Dosage: UNK
     Dates: start: 20190917, end: 20190917
  20. CLOTRIMAZOLE CREAM [Concomitant]
     Active Substance: CLOTRIMAZOLE
     Dosage: UNK, BID
     Route: 061
     Dates: start: 20191004, end: 20191025
  21. OSELTAMIVIR [Concomitant]
     Active Substance: OSELTAMIVIR
     Dosage: UNK
     Dates: start: 20191012, end: 20191017
  22. HYDROCORTISONE. [Concomitant]
     Active Substance: HYDROCORTISONE
     Dosage: UNK
     Dates: start: 20190910, end: 20190918
  23. CEFOTAXIME [Concomitant]
     Active Substance: CEFOTAXIME SODIUM
     Dosage: UNK
     Dates: start: 20190910, end: 20190917
  24. LASIX [Concomitant]
     Active Substance: FUROSEMIDE
     Dosage: UNK
     Dates: start: 20190921, end: 20190921
  25. PREDNISOLONE. [Concomitant]
     Active Substance: PREDNISOLONE
     Dosage: UNK
     Dates: start: 20191002, end: 20191015
  26. PIPERACILLIN AND TAZOBACTAM [Concomitant]
     Active Substance: PIPERACILLIN SODIUM\TAZOBACTAM SODIUM
     Dosage: UNK
     Dates: start: 20191001, end: 20191012

REACTIONS (1)
  - Hepatic enzyme increased [Recovering/Resolving]

NARRATIVE: CASE EVENT DATE: 20191025
